FAERS Safety Report 8117754-3 (Version None)
Quarter: 2012Q1

REPORT INFORMATION
  Report Type: 
  Country: None (occurrence: None)
  Receive Date: 20120203
  Receipt Date: 20120203
  Transmission Date: 20120608
  Serious: Yes (Hospitalization)
  Sender: FDA-Public Use
  Company Number: None

PATIENT
  Sex: Female

DRUGS (2)
  1. PACTIV LOTION 2.5% BENZOYL PEROXIDE GUTHY|RENEKER [Suspect]
     Indication: ACNE
     Dosage: DAILY, TOPICAL 4 DAYS DAILY
  2. PROACTIV CLEANSER 2.5% BENZOYL PEROXIDE GUTHY|RENKER [Suspect]
     Indication: ACNE
     Dosage: DAILY, TOPICAL 4 DAYS DAILY
     Route: 061

REACTIONS (1)
  - DYSPNOEA [None]
